FAERS Safety Report 9862445 (Version 1)
Quarter: 2014Q1

REPORT INFORMATION
  Report Type: Spontaneous
  Country: US (occurrence: US)
  Receive Date: 20140203
  Receipt Date: 20140203
  Transmission Date: 20141002
  Serious: No
  Sender: FDA-Public Use
  Company Number: US-BAYER-2014-016945

PATIENT
  Age: 77 Year
  Sex: Female
  Weight: 62.13 kg

DRUGS (6)
  1. ALEVE TABLET [Suspect]
     Indication: BACK PAIN
     Dosage: UNK
     Route: 048
     Dates: start: 20140108
  2. ALEVE TABLET [Suspect]
     Indication: BACK PAIN
     Dosage: 1 DF, BID
     Route: 048
  3. ALEVE TABLET [Suspect]
     Indication: BACK PAIN
     Dosage: 1 DF, QD
     Route: 048
  4. VYTORIN [Concomitant]
  5. VITAMIN D [Concomitant]
  6. TYLENOL PM [DIPHENHYDRAMINE HYDROCHLORIDE,PARACETAMOL] [Concomitant]
     Dosage: 1/2 DF, PRN

REACTIONS (1)
  - Incorrect drug administration duration [None]
